FAERS Safety Report 7085387-6 (Version None)
Quarter: 2010Q4

REPORT INFORMATION
  Report Type: 
  Country: None (occurrence: None)
  Receive Date: 20101105
  Receipt Date: 20101101
  Transmission Date: 20110411
  Serious: Yes (Other)
  Sender: FDA-Public Use
  Company Number: JP-PFIZER INC-2010138885

PATIENT
  Age: 60 Year
  Sex: Female

DRUGS (6)
  1. ZOLOFT [Suspect]
     Indication: DEPRESSION
     Dosage: 50 MG/DAY
     Route: 048
  2. ZOLOFT [Suspect]
     Dosage: 100 MG/DAY
     Route: 048
     Dates: start: 20101004
  3. SOLANAX [Suspect]
     Dosage: 0.8 MG/DAY
     Route: 048
     Dates: start: 20101004
  4. DOGMATYL [Suspect]
     Dosage: 150 MG/DAY
     Route: 048
     Dates: start: 20101004
  5. BENZALIN [Suspect]
     Dosage: 10 MG/DAY
     Route: 048
     Dates: start: 20101004
  6. LENDORMIN [Suspect]
     Dosage: 0.25 MG/DAY
     Route: 048
     Dates: start: 20101004

REACTIONS (3)
  - DEPERSONALISATION [None]
  - DEPRESSION [None]
  - FEELING ABNORMAL [None]
